FAERS Safety Report 23986982 (Version 1)
Quarter: 2024Q2

REPORT INFORMATION
  Report Type: Spontaneous
  Country: CN (occurrence: CN)
  Receive Date: 20240618
  Receipt Date: 20240618
  Transmission Date: 20240716
  Serious: Yes (Hospitalization, Other)
  Sender: FDA-Public Use
  Company Number: CN-ELI_LILLY_AND_COMPANY-CN202406005247

PATIENT
  Age: 73 Year
  Sex: Male
  Weight: 55 kg

DRUGS (1)
  1. HUMALOG MIX50/50 [Suspect]
     Active Substance: INSULIN LISPRO
     Indication: Diabetes mellitus
     Dosage: 15 INTERNATIONAL UNIT, DAILY
     Route: 058
     Dates: start: 20231116, end: 20240603

REACTIONS (3)
  - Blood glucose abnormal [Unknown]
  - Rash [Not Recovered/Not Resolved]
  - Injection site pruritus [Not Recovered/Not Resolved]

NARRATIVE: CASE EVENT DATE: 20231126
